FAERS Safety Report 8423850-3 (Version None)
Quarter: 2012Q2

REPORT INFORMATION
  Report Type: 
  Country: None (occurrence: None)
  Receive Date: 20120608
  Receipt Date: 20111202
  Transmission Date: 20120825
  Serious: No
  Sender: FDA-Public Use
  Company Number: US-ASTRAZENECA-2011SE02268

PATIENT
  Age: 60 Year
  Sex: Female
  Weight: 102.5 kg

DRUGS (5)
  1. NEXIUM [Suspect]
     Dosage: 40 MG, TWO CAPSULE PER DAY
     Route: 048
  2. NEXIUM [Suspect]
     Indication: GASTROOESOPHAGEAL REFLUX DISEASE
     Dosage: ONE CAPSULE PER DAY
     Route: 048
  3. JANUMET [Concomitant]
  4. ATACAND [Suspect]
     Route: 048
  5. SYNTHROID [Concomitant]

REACTIONS (10)
  - HEADACHE [None]
  - INSOMNIA [None]
  - DRUG DOSE OMISSION [None]
  - INAPPROPRIATE SCHEDULE OF DRUG ADMINISTRATION [None]
  - DRUG DISPENSING ERROR [None]
  - INCORRECT DRUG ADMINISTRATION DURATION [None]
  - GASTRITIS EROSIVE [None]
  - FEELING ABNORMAL [None]
  - GASTRIC DISORDER [None]
  - ERUCTATION [None]
